FAERS Safety Report 4590894-1 (Version None)
Quarter: 2005Q1

REPORT INFORMATION
  Report Type: 
  Country: None (occurrence: None)
  Receive Date: 20050225
  Receipt Date: 20041210
  Transmission Date: 20050727
  Serious: No
  Sender: FDA-Public Use
  Company Number: US-GLAXOSMITHKLINE-A0536877A

PATIENT
  Age: 45 Year
  Sex: Male

DRUGS (5)
  1. ZIAGEN [Suspect]
     Route: 048
     Dates: start: 20041202
  2. ADEFOVIR [Concomitant]
  3. VALTREX [Concomitant]
  4. SUSTIVA [Concomitant]
  5. LAMIVUDINE [Concomitant]

REACTIONS (3)
  - BLOOD PRESSURE INCREASED [None]
  - PAIN [None]
  - PYREXIA [None]
